FAERS Safety Report 21198348 (Version 2)
Quarter: 2022Q4

REPORT INFORMATION
  Report Type: Spontaneous
  Country: US (occurrence: US)
  Receive Date: 20220811
  Receipt Date: 20221206
  Transmission Date: 20230113
  Serious: Yes (Other)
  Sender: FDA-Public Use
  Company Number: US-BRISTOL-MYERS SQUIBB COMPANY-2022-087559

PATIENT
  Age: 58 Year
  Sex: Female

DRUGS (2)
  1. REVLIMID [Suspect]
     Active Substance: LENALIDOMIDE
     Indication: Plasma cell myeloma
     Dosage: DOSE : 1;     FREQ : QD FOR 21 DAYS ON AND 7 DAYS OFF
     Route: 048
     Dates: start: 20201019
  2. REVLIMID [Suspect]
     Active Substance: LENALIDOMIDE
     Dosage: FREQUENCY : QD FOR 21 DAYS ON AND 7 DAYS OFF
     Route: 048
     Dates: start: 202010

REACTIONS (1)
  - Neuropathy peripheral [Unknown]
